FAERS Safety Report 11075712 (Version 2)
Quarter: 2015Q2

REPORT INFORMATION
  Report Type: Report from Study
  Country: US (occurrence: US)
  Receive Date: 20150429
  Receipt Date: 20150531
  Transmission Date: 20150821
  Serious: No
  Sender: FDA-Public Use
  Company Number: PHEH2015US007704

PATIENT
  Sex: Female
  Weight: 76.19 kg

DRUGS (1)
  1. GILENYA [Suspect]
     Active Substance: FINGOLIMOD HYDROCHLORIDE
     Indication: MULTIPLE SCLEROSIS
     Dosage: 0.5 MG, QD
     Route: 048
     Dates: start: 20141215

REACTIONS (3)
  - White blood cell count decreased [Unknown]
  - Anti-JC virus antibody index [Not Recovered/Not Resolved]
  - Feeling abnormal [Unknown]
